FAERS Safety Report 7936967-4 (Version None)
Quarter: 2011Q4

REPORT INFORMATION
  Report Type: 
  Country: None (occurrence: None)
  Receive Date: 20111123
  Receipt Date: 20111121
  Transmission Date: 20120403
  Serious: No
  Sender: FDA-Public Use
  Company Number: US-PFIZER INC-2011284865

PATIENT
  Sex: Male

DRUGS (4)
  1. PREDNISONE [Concomitant]
     Dosage: UNK
  2. CIALIS [Concomitant]
     Dosage: UNK
  3. ADVIL PM [Suspect]
     Indication: SLEEP DISORDER
     Dosage: UNK AS NEEDED
     Route: 048
     Dates: start: 20110101
  4. ADVIL PM [Suspect]
     Indication: PAIN

REACTIONS (1)
  - HYPERSENSITIVITY [None]
